FAERS Safety Report 10168866 (Version 2)
Quarter: 2014Q3

REPORT INFORMATION
  Report Type: Spontaneous
  Country: US (occurrence: None)
  Receive Date: 20140509
  Receipt Date: 20140902
  Transmission Date: 20150326
  Serious: Yes (Hospitalization)
  Sender: FDA-Public Use
  Company Number: UTC-048082

PATIENT
  Age: 67 Year
  Sex: Female
  Weight: 121.1 kg

DRUGS (1)
  1. REMODULIN [Suspect]
     Active Substance: TREPROSTINIL
     Indication: PULMONARY ARTERIAL HYPERTENSION
     Dosage: 44.64 UG/KG (0.031 UG/KG, 1 IN 1 MIN)
     Route: 058
     Dates: start: 20090323

REACTIONS (7)
  - Diarrhoea [None]
  - Vomiting [None]
  - Sepsis [None]
  - Respiratory failure [None]
  - Perforated ulcer [None]
  - Infusion site erythema [None]
  - Fistula [None]

NARRATIVE: CASE EVENT DATE: 201404
